FAERS Safety Report 6129425-3 (Version None)
Quarter: 2009Q1

REPORT INFORMATION
  Report Type: 
  Country: None (occurrence: None)
  Receive Date: 20090324
  Receipt Date: 20090316
  Transmission Date: 20090719
  Serious: Yes (Other)
  Sender: FDA-Public Use
  Company Number: PHEH2009US02637

PATIENT
  Age: 80 Year
  Sex: Male

DRUGS (11)
  1. ENABLEX [Suspect]
     Dosage: 7.5 MG, QD
     Route: 048
     Dates: start: 20090304, end: 20090310
  2. ENABLEX [Suspect]
     Dosage: 15 MG, QD
     Route: 048
     Dates: start: 20090311, end: 20090314
  3. CLONAZEPAM [Concomitant]
  4. MIRTAZAPINE [Concomitant]
     Dosage: 30 MG, UNK
  5. ASPIRIN [Concomitant]
  6. ASCORBIC ACID [Concomitant]
  7. VITAMIN E [Concomitant]
  8. ACIDEX [Concomitant]
  9. CYANOCOBALAMIN [Concomitant]
     Dosage: 1000 MG, UNK
  10. METOPROLOL TARTRATE [Concomitant]
  11. DIOVAN HCT [Concomitant]
     Dosage: 80/12.5 MG, UNK
     Route: 048

REACTIONS (3)
  - BLOOD GLUCOSE DECREASED [None]
  - BLOOD PRESSURE DECREASED [None]
  - DIZZINESS [None]
